FAERS Safety Report 11818889 (Version 2)
Quarter: 2017Q2

REPORT INFORMATION
  Report Type: Spontaneous
  Country: US (occurrence: US)
  Receive Date: 20151210
  Receipt Date: 20170407
  Transmission Date: 20170829
  Serious: No
  Sender: FDA-Public Use
  Company Number: US-JNJFOC-20151102619

PATIENT
  Sex: Male
  Weight: 58.06 kg

DRUGS (15)
  1. RISPERDAL [Suspect]
     Active Substance: RISPERIDONE
     Indication: BIPOLAR DISORDER
     Route: 048
     Dates: start: 20031117
  2. RISPERDAL [Suspect]
     Active Substance: RISPERIDONE
     Indication: ABNORMAL BEHAVIOUR
     Dosage: VARYING DOSES OF 0.5 - 1MG.
     Route: 048
     Dates: start: 2003
  3. RISPERDAL [Suspect]
     Active Substance: RISPERIDONE
     Indication: ATTENTION DEFICIT/HYPERACTIVITY DISORDER
     Dosage: VARYING DOSES OF 0.5 - 1MG.
     Route: 048
     Dates: start: 2003
  4. RISPERDAL [Suspect]
     Active Substance: RISPERIDONE
     Indication: ABNORMAL BEHAVIOUR
     Route: 048
     Dates: start: 20031117
  5. RISPERDAL [Suspect]
     Active Substance: RISPERIDONE
     Indication: SCHIZOPHRENIA
     Route: 048
     Dates: start: 20031117
  6. RISPERDAL [Suspect]
     Active Substance: RISPERIDONE
     Indication: SCHIZOPHRENIA
     Dosage: VARYING DOSES OF 0.5 - 1MG.
     Route: 048
     Dates: start: 2003
  7. RISPERDAL [Suspect]
     Active Substance: RISPERIDONE
     Indication: ATTENTION DEFICIT/HYPERACTIVITY DISORDER
     Route: 048
     Dates: start: 20031117
  8. RISPERDAL [Suspect]
     Active Substance: RISPERIDONE
     Indication: OPPOSITIONAL DEFIANT DISORDER
     Route: 048
     Dates: start: 20031117
  9. RISPERDAL [Suspect]
     Active Substance: RISPERIDONE
     Indication: BIPOLAR DISORDER
     Route: 048
     Dates: start: 19991209
  10. RISPERDAL [Suspect]
     Active Substance: RISPERIDONE
     Indication: OPPOSITIONAL DEFIANT DISORDER
     Dosage: VARYING DOSES OF 0.5 - 1MG.
     Route: 048
     Dates: start: 2003
  11. RISPERDAL [Suspect]
     Active Substance: RISPERIDONE
     Indication: OPPOSITIONAL DEFIANT DISORDER
     Route: 048
     Dates: start: 19991209
  12. RISPERDAL [Suspect]
     Active Substance: RISPERIDONE
     Indication: SCHIZOPHRENIA
     Route: 048
     Dates: start: 19991209
  13. RISPERDAL [Suspect]
     Active Substance: RISPERIDONE
     Indication: BIPOLAR DISORDER
     Dosage: VARYING DOSES OF 0.5 - 1MG.
     Route: 048
     Dates: start: 2003
  14. RISPERDAL [Suspect]
     Active Substance: RISPERIDONE
     Indication: ATTENTION DEFICIT/HYPERACTIVITY DISORDER
     Route: 048
     Dates: start: 19991209
  15. RISPERDAL [Suspect]
     Active Substance: RISPERIDONE
     Indication: ABNORMAL BEHAVIOUR
     Route: 048
     Dates: start: 19991209

REACTIONS (2)
  - Gynaecomastia [Unknown]
  - Obesity [Unknown]

NARRATIVE: CASE EVENT DATE: 2003
